FAERS Safety Report 24984379 (Version 1)
Quarter: 2025Q1

REPORT INFORMATION
  Report Type: Spontaneous
  Country: US (occurrence: US)
  Receive Date: 20250219
  Receipt Date: 20250219
  Transmission Date: 20250409
  Serious: No
  Sender: ANI
  Company Number: US-ANIPHARMA-015603

PATIENT
  Sex: Female

DRUGS (1)
  1. OPIUM [Suspect]
     Active Substance: OPIUM
     Indication: Diarrhoea
     Route: 048
     Dates: start: 200904

REACTIONS (1)
  - Tremor [Unknown]

NARRATIVE: CASE EVENT DATE: 20230101
